FAERS Safety Report 23130160 (Version 1)
Quarter: 2023Q4

REPORT INFORMATION
  Report Type: Report from Study
  Country: AU (occurrence: AU)
  Receive Date: 20231031
  Receipt Date: 20231031
  Transmission Date: 20240110
  Serious: Yes (Hospitalization)
  Sender: FDA-Public Use
  Company Number: AU-GLAXOSMITHKLINE INC.-Z0021761B

PATIENT
  Sex: Male
  Weight: 75 kg

DRUGS (4)
  1. PLACEBO [Suspect]
     Active Substance: UNSPECIFIED INGREDIENT
     Indication: BRAF V600E mutation positive
     Dosage: UNK
     Route: 048
     Dates: start: 20130828, end: 20131205
  2. PLACEBO [Suspect]
     Active Substance: UNSPECIFIED INGREDIENT
     Indication: Malignant melanoma
  3. DABRAFENIB [Suspect]
     Active Substance: DABRAFENIB
     Indication: Malignant melanoma
     Dosage: UNK
     Route: 065
     Dates: start: 20131212
  4. MAXOLON [Concomitant]
     Active Substance: METOCLOPRAMIDE HYDROCHLORIDE
     Indication: Prophylaxis of nausea and vomiting
     Dosage: 10 MG, ONCE/SINGLE
     Route: 042
     Dates: start: 20131215, end: 20131215

REACTIONS (1)
  - Abdominal pain upper [Recovered/Resolved]

NARRATIVE: CASE EVENT DATE: 20131215
